FAERS Safety Report 7570215-2 (Version None)
Quarter: 2011Q2

REPORT INFORMATION
  Report Type: 
  Country: None (occurrence: None)
  Receive Date: 20110624
  Receipt Date: 20110610
  Transmission Date: 20111010
  Serious: Yes (Other)
  Sender: FDA-Public Use
  Company Number: JP-PFIZER INC-2011128196

PATIENT
  Age: 74 Year
  Sex: Male
  Weight: 57 kg

DRUGS (10)
  1. AMARYL [Concomitant]
     Dosage: 1 MG, 1X/DAY
     Route: 048
     Dates: start: 20110113
  2. GLUCOBAY [Concomitant]
     Dosage: 100 MG, 3X/DAY
     Route: 048
     Dates: start: 20110113
  3. TEMSIROLIMUS [Suspect]
     Dosage: 15 MG, WEEKLY
     Route: 041
     Dates: start: 20110317, end: 20110331
  4. TEMSIROLIMUS [Suspect]
     Dosage: 25 MG, WEEKLY
     Route: 041
     Dates: start: 20110106, end: 20110217
  5. DIPHENHYDRAMINE HCL [Concomitant]
     Indication: PROPHYLAXIS
     Route: 048
  6. GENTACIN [Concomitant]
     Dosage: UNK
     Route: 003
     Dates: start: 20101209
  7. GLUFAST [Concomitant]
     Dosage: 10 MG, 3X/DAY
     Route: 048
     Dates: start: 20110126
  8. ACTOS [Concomitant]
     Dosage: 15 MG, 1X/DAY
     Route: 048
     Dates: start: 20110113
  9. TEMSIROLIMUS [Suspect]
     Indication: RENAL CELL CARCINOMA
     Dosage: 25 MG, WEEKLY
     Route: 041
     Dates: start: 20101125, end: 20101222
  10. TEMSIROLIMUS [Suspect]
     Dosage: 20 MG, WEEKLY
     Route: 041
     Dates: start: 20110303, end: 20110303

REACTIONS (2)
  - PLEURAL EFFUSION [None]
  - PERICARDIAL EFFUSION [None]
